FAERS Safety Report 7275436-4 (Version None)
Quarter: 2011Q1

REPORT INFORMATION
  Report Type: 
  Country: None (occurrence: None)
  Receive Date: 20110202
  Receipt Date: 20110202
  Transmission Date: 20110831
  Serious: Yes (Other)
  Sender: FDA-Public Use
  Company Number: None

PATIENT
  Age: 80 Year
  Sex: Female
  Weight: 50.3493 kg

DRUGS (1)
  1. RECLAST [Suspect]
     Indication: OSTEOPENIA
     Dosage: 1 INFUSION
     Dates: start: 20101223

REACTIONS (4)
  - MUSCLE SPASMS [None]
  - PAIN [None]
  - SYNCOPE [None]
  - NAUSEA [None]
